FAERS Safety Report 23274118 (Version 1)
Quarter: 2023Q4

REPORT INFORMATION
  Report Type: Spontaneous
  Country: US (occurrence: US)
  Receive Date: 20231208
  Receipt Date: 20231208
  Transmission Date: 20240109
  Serious: Yes (Hospitalization, Other)
  Sender: FDA-Public Use
  Company Number: US-BRISTOL-MYERS SQUIBB COMPANY-2023-175137

PATIENT
  Age: 85 Year
  Sex: Male

DRUGS (1)
  1. POMALYST [Suspect]
     Active Substance: POMALIDOMIDE
     Indication: Anaemia
     Route: 048
     Dates: start: 20231201

REACTIONS (6)
  - Neoplasm progression [Unknown]
  - Ear infection [Recovered/Resolved]
  - Decreased appetite [Unknown]
  - Bone pain [Unknown]
  - Asthenia [Unknown]
  - Off label use [Unknown]
